FAERS Safety Report 16282348 (Version 4)
Quarter: 2022Q1

REPORT INFORMATION
  Report Type: Spontaneous
  Country: US (occurrence: US)
  Receive Date: 20190507
  Receipt Date: 20220314
  Transmission Date: 20220423
  Serious: No
  Sender: FDA-Public Use
  Company Number: US-PFIZER INC-2019185852

PATIENT
  Age: 60 Year
  Sex: Female
  Weight: 109.7 kg

DRUGS (3)
  1. CHANTIX [Suspect]
     Active Substance: VARENICLINE TARTRATE
     Indication: Smoking cessation therapy
     Dosage: UNK
     Dates: start: 20190201, end: 2019
  2. CHANTIX [Suspect]
     Active Substance: VARENICLINE TARTRATE
     Dosage: UNK
     Dates: start: 20190301, end: 2019
  3. CHANTIX [Suspect]
     Active Substance: VARENICLINE TARTRATE
     Dosage: QUANTITY 90 FOR 90 DAYS
     Dates: start: 2019

REACTIONS (1)
  - No adverse event [Unknown]
